FAERS Safety Report 9770867 (Version 1)
Quarter: 2013Q4

REPORT INFORMATION
  Report Type: Spontaneous
  Country: US (occurrence: US)
  Receive Date: 20131218
  Receipt Date: 20131218
  Transmission Date: 20140711
  Serious: No
  Sender: FDA-Public Use
  Company Number: US-BIOGENIDEC-2013BI119765

PATIENT
  Age: 51 Year
  Sex: Female

DRUGS (16)
  1. SM VITAMIN B12 [Concomitant]
  2. PROVIGIL [Concomitant]
  3. ASPIRIN ADULT [Concomitant]
  4. CO Q10 [Concomitant]
  5. ARICEPT [Concomitant]
  6. VITAMIN D3 [Concomitant]
  7. TECFIDERA [Suspect]
     Indication: MULTIPLE SCLEROSIS
     Route: 048
     Dates: start: 20131202
  8. SOLU-MEDROL [Concomitant]
  9. PEPTO-BISMOL [Concomitant]
  10. PREVACID [Concomitant]
  11. CELEBREX [Concomitant]
  12. LIPITOR [Concomitant]
  13. NITROSTAT [Concomitant]
  14. DIOVAN [Concomitant]
  15. WELLBUTRIN [Concomitant]
  16. BYSTOLIC [Concomitant]

REACTIONS (2)
  - Flatulence [Unknown]
  - Nausea [Unknown]
